FAERS Safety Report 8625038-X (Version None)
Quarter: 2012Q3

REPORT INFORMATION
  Report Type: 
  Country: None (occurrence: None)
  Receive Date: 20120827
  Receipt Date: 20120822
  Transmission Date: 20120928
  Serious: Yes (Hospitalization, Other)
  Sender: FDA-Public Use
  Company Number: KR-ELI_LILLY_AND_COMPANY-KR201208007345

PATIENT
  Sex: Male

DRUGS (5)
  1. HUMALOG MIX 50/50 [Suspect]
     Dosage: 22 U, TID
     Route: 058
     Dates: start: 20120724
  2. HUMALOG MIX 50/50 [Suspect]
     Dosage: 20 U, BID
     Route: 058
     Dates: start: 20120806
  3. HUMALOG MIX 50/50 [Suspect]
     Indication: TYPE 2 DIABETES MELLITUS
     Dosage: 16 U, TID
     Route: 058
     Dates: start: 20120721, end: 20120724
  4. HUMALOG MIX 50/50 [Suspect]
     Dosage: 30 U, TID
     Route: 058
  5. HUMALOG MIX 50/50 [Suspect]
     Dosage: 16 U, QD
     Route: 058
     Dates: start: 20120806

REACTIONS (5)
  - HYPERGLYCAEMIA [None]
  - FEELING COLD [None]
  - BLOOD GLUCOSE INCREASED [None]
  - NAUSEA [None]
  - VOMITING [None]
